FAERS Safety Report 21474556 (Version 1)
Quarter: 2022Q4

REPORT INFORMATION
  Report Type: Spontaneous
  Country: JP (occurrence: JP)
  Receive Date: 20221018
  Receipt Date: 20221018
  Transmission Date: 20230113
  Serious: No
  Sender: FDA-Public Use
  Company Number: JP-MSD-2210JPN001759J

PATIENT
  Age: 53 Year
  Sex: Male
  Weight: 29 kg

DRUGS (3)
  1. LAGEVRIO [Suspect]
     Active Substance: MOLNUPIRAVIR
     Indication: COVID-19 treatment
     Dosage: 800 MILLIGRAM, QD
     Route: 048
     Dates: start: 20220928, end: 20220930
  2. VEKLURY [Concomitant]
     Active Substance: REMDESIVIR
     Dosage: UNK UNK, UNKNOWN
     Route: 041
     Dates: start: 20220927, end: 20220928
  3. SOTROVIMAB [Concomitant]
     Active Substance: SOTROVIMAB
     Dosage: UNK
     Route: 041
     Dates: start: 20220927, end: 20220928

REACTIONS (2)
  - Intentional underdose [Unknown]
  - Product use issue [Unknown]

NARRATIVE: CASE EVENT DATE: 20220928
